FAERS Safety Report 9392207 (Version 2)
Quarter: 2013Q3

REPORT INFORMATION
  Report Type: Spontaneous
  Country: JP (occurrence: JP)
  Receive Date: 20130710
  Receipt Date: 20130729
  Transmission Date: 20140515
  Serious: Yes (Hospitalization)
  Sender: FDA-Public Use
  Company Number: JP-009507513-1307JPN003122

PATIENT
  Age: 70 Year
  Sex: Male

DRUGS (6)
  1. PEGINTRON [Suspect]
     Indication: CHRONIC HEPATITIS C
     Dosage: DAILY DOSE UNKNOWN
     Route: 058
     Dates: start: 200708, end: 2008
  2. PEGINTRON [Suspect]
     Dosage: DAILY DOSE UNKNOWN
     Route: 058
     Dates: start: 2008, end: 200901
  3. REBETOL [Suspect]
     Indication: CHRONIC HEPATITIS C
     Dosage: DAILY DOSE UNKNOWN
     Route: 048
     Dates: start: 200708, end: 2008
  4. REBETOL [Suspect]
     Dosage: DAILY DOSE UNKNOWN
     Route: 048
     Dates: start: 2008, end: 200901
  5. INTRON A POWDER FOR INJECTION 300 [Suspect]
     Indication: CHRONIC HEPATITIS C
     Dosage: DAILY DOSE UNKNOWN
     Route: 058
     Dates: start: 1999, end: 1999
  6. LOCHOL (FLUVASTATIN SODIUM) [Concomitant]
     Indication: CHRONIC HEPATITIS C
     Dosage: DAILY DOSAGE UNKNOWN
     Route: 048
     Dates: start: 2008, end: 200901

REACTIONS (2)
  - Autoimmune hepatitis [Unknown]
  - Drug ineffective [Unknown]
